FAERS Safety Report 20219514 (Version 1)
Quarter: 2021Q4

REPORT INFORMATION
  Report Type: Spontaneous
  Country: DE (occurrence: DE)
  Receive Date: 20211222
  Receipt Date: 20211222
  Transmission Date: 20220303
  Serious: Yes (Hospitalization)
  Sender: FDA-Public Use
  Company Number: DE-ANIPHARMA-2021-DE-000281

PATIENT
  Age: 81 Year
  Sex: Male

DRUGS (11)
  1. CANDESARTAN CILEXETIL [Suspect]
     Active Substance: CANDESARTAN CILEXETIL
     Indication: Product used for unknown indication
     Dosage: 8 MG BID
     Route: 048
  2. PANTOPRAZOLE SODIUM [Concomitant]
     Active Substance: PANTOPRAZOLE SODIUM
     Dosage: 40 MG DAILY
     Route: 048
  3. TAMSULOSIN [Concomitant]
     Active Substance: TAMSULOSIN
     Dosage: 40 MG DAILY
     Route: 048
  4. BISOPROLOL [Suspect]
     Active Substance: BISOPROLOL
     Dosage: 5 MG UNK
     Route: 048
  5. TORSEMIDE [Suspect]
     Active Substance: TORSEMIDE
     Route: 065
     Dates: start: 20210628
  6. APIXABAN [Concomitant]
     Active Substance: APIXABAN
     Dosage: 5 MG BID
     Route: 048
     Dates: start: 20210623
  7. ATORVASTATIN [Concomitant]
     Active Substance: ATORVASTATIN
     Dosage: 40 MG UNK
     Route: 048
  8. ACETYLCYSTEINE [Concomitant]
     Active Substance: ACETYLCYSTEINE
     Dosage: 600 MG DAILY
     Route: 048
  9. CLOPIDOGREL [Concomitant]
     Active Substance: CLOPIDOGREL BISULFATE
     Dosage: 75 MG DAILY
     Route: 048
     Dates: start: 20211006
  10. IPRATROPIUM BROMIDE, SALBUTAMOL [Concomitant]
     Route: 065
  11. POTASSIUM CHLORIDE [Concomitant]
     Active Substance: POTASSIUM CHLORIDE
     Dosage: 8 MMOL BID
     Route: 048

REACTIONS (4)
  - Product prescribing error [Unknown]
  - Syncope [Unknown]
  - Hypotension [Unknown]
  - Anaemia [Unknown]

NARRATIVE: CASE EVENT DATE: 20210626
